FAERS Safety Report 26010447 (Version 2)
Quarter: 2025Q4

REPORT INFORMATION
  Report Type: Spontaneous
  Country: JP (occurrence: JP)
  Receive Date: 20251107
  Receipt Date: 20251231
  Transmission Date: 20260117
  Serious: Yes (Other)
  Sender: CSL BEHRING
  Company Number: JP-BEH-2025224483

PATIENT
  Age: 49 Year
  Sex: Female

DRUGS (3)
  1. BERINERT [Suspect]
     Active Substance: HUMAN C1-ESTERASE INHIBITOR
     Indication: Hereditary angioedema with normal C1 esterase inhibitor
     Dosage: UNK UNK, PRN
     Route: 041
  2. BERINERT [Suspect]
     Active Substance: HUMAN C1-ESTERASE INHIBITOR
     Indication: Hereditary angioedema with normal C1 esterase inhibitor
     Dosage: UNK UNK, PRN
     Route: 041
  3. TRANSAMIN [Concomitant]
     Active Substance: TRANEXAMIC ACID
     Indication: Hereditary angioedema with normal C1 esterase inhibitor
     Dosage: UNK
     Route: 065

REACTIONS (6)
  - Intestinal obstruction [Recovered/Resolved]
  - Allergic colitis [Recovered/Resolved]
  - Sleep deficit [Recovered/Resolved]
  - Stress [Recovered/Resolved]
  - Tooth extraction [Unknown]
  - Menopausal symptoms [Recovered/Resolved]
